FAERS Safety Report 13166135 (Version 1)
Quarter: 2017Q1

REPORT INFORMATION
  Report Type: Spontaneous
  Country: None (occurrence: US)
  Receive Date: 20170127
  Receipt Date: 20170127
  Transmission Date: 20170428
  Serious: Yes (Other)
  Sender: FDA-Public Use
  Company Number: None

PATIENT
  Age: 20 Year
  Sex: Female
  Weight: 93.52 kg

DRUGS (1)
  1. LAMOTRIGINE X6 100MG 600MG [Suspect]
     Active Substance: LAMOTRIGINE
     Route: 048
     Dates: start: 20140512, end: 20141215

REACTIONS (7)
  - Vomiting [None]
  - Dizziness [None]
  - Hangover [None]
  - Seizure [None]
  - Nausea [None]
  - Sluggishness [None]
  - Headache [None]

NARRATIVE: CASE EVENT DATE: 201505
